APPROVED DRUG PRODUCT: OXALIPLATIN
Active Ingredient: OXALIPLATIN
Strength: 50MG/VIAL
Dosage Form/Route: INJECTABLE;INTRAVENOUS
Application: A204616 | Product #001 | TE Code: AP
Applicant: QILU PHARMACEUTICAL HAINAN CO LTD
Approved: May 11, 2016 | RLD: No | RS: No | Type: RX